FAERS Safety Report 25906018 (Version 1)
Quarter: 2025Q4

REPORT INFORMATION
  Report Type: Report from Study
  Country: CA (occurrence: CA)
  Receive Date: 20251010
  Receipt Date: 20251010
  Transmission Date: 20260117
  Serious: Yes (Hospitalization)
  Sender: AMGEN
  Company Number: CA-AMGEN-CANSL2025061752

PATIENT
  Age: 77 Year
  Sex: Female

DRUGS (1)
  1. EVENITY [Suspect]
     Active Substance: ROMOSOZUMAB-AQQG
     Indication: Osteoporosis postmenopausal
     Dosage: 210 MILLIGRAM, QMO
     Route: 058
     Dates: start: 20250309

REACTIONS (9)
  - Injection site erythema [Unknown]
  - Pain in extremity [Unknown]
  - Anxiety [Unknown]
  - C-reactive protein increased [Unknown]
  - Arthralgia [Unknown]
  - Jaw disorder [Unknown]
  - Pain [Unknown]
  - Injection site pain [Unknown]
  - Drug intolerance [Unknown]

NARRATIVE: CASE EVENT DATE: 20250301
